FAERS Safety Report 15366011 (Version 1)
Quarter: 2018Q3

REPORT INFORMATION
  Report Type: Report from Study
  Country: US (occurrence: US)
  Receive Date: 20180910
  Receipt Date: 20180910
  Transmission Date: 20181010
  Serious: No
  Sender: FDA-Public Use
  Company Number: PHEH2018US036819

PATIENT
  Sex: Female

DRUGS (1)
  1. ENTRESTO [Suspect]
     Active Substance: SACUBITRIL\VALSARTAN
     Indication: PRODUCT USE IN UNAPPROVED INDICATION
     Route: 065

REACTIONS (3)
  - Rhinorrhoea [Unknown]
  - Nasopharyngitis [Unknown]
  - Cough [Unknown]
